FAERS Safety Report 5903061-3 (Version None)
Quarter: 2008Q3

REPORT INFORMATION
  Report Type: 
  Country: None (occurrence: None)
  Receive Date: 20080930
  Receipt Date: 20080923
  Transmission Date: 20090109
  Serious: Yes (Other)
  Sender: FDA-Public Use
  Company Number: US-ROCHE-584181

PATIENT
  Sex: Female
  Weight: 77.1 kg

DRUGS (1)
  1. ISOTRETINOIN [Suspect]
     Dosage: THE PATIENT WAS DISPENSED ACCUTANE CAPSULE ON 14 MAY 2008
     Route: 048
     Dates: start: 20080514, end: 20080818

REACTIONS (1)
  - STEVENS-JOHNSON SYNDROME [None]
